FAERS Safety Report 4945411-0 (Version None)
Quarter: 2006Q1

REPORT INFORMATION
  Report Type: 
  Country: None (occurrence: None)
  Receive Date: 20060316
  Receipt Date: 20060310
  Transmission Date: 20060701
  Serious: Yes (Hospitalization)
  Sender: FDA-Public Use
  Company Number: BR-ROCHE-439845

PATIENT
  Age: 75 Year
  Sex: Male
  Weight: 48 kg

DRUGS (3)
  1. RIVOTRIL [Suspect]
     Route: 048
     Dates: start: 20010615, end: 20050315
  2. RIVOTRIL [Suspect]
     Route: 048
     Dates: start: 20050315
  3. PURAN T4 [Concomitant]
     Indication: THYROID DISORDER
     Route: 048

REACTIONS (3)
  - HYPERTENSIVE CRISIS [None]
  - HYPOAESTHESIA ORAL [None]
  - MALAISE [None]
